FAERS Safety Report 4905524-6 (Version None)
Quarter: 2006Q1

REPORT INFORMATION
  Report Type: 
  Country: None (occurrence: None)
  Receive Date: 20060208
  Receipt Date: 20060130
  Transmission Date: 20060701
  Serious: Yes (Other)
  Sender: FDA-Public Use
  Company Number: GB-BRISTOL-MYERS SQUIBB COMPANY-13265061

PATIENT
  Age: 34 Year
  Sex: Male

DRUGS (2)
  1. REYATAZ [Suspect]
     Route: 048
     Dates: start: 20040501
  2. RITONAVIR [Concomitant]
     Route: 048
     Dates: start: 20040501

REACTIONS (1)
  - NEPHROLITHIASIS [None]
